FAERS Safety Report 11806214 (Version 1)
Quarter: 2015Q4

REPORT INFORMATION
  Report Type: Spontaneous
  Country: US (occurrence: None)
  Receive Date: 20151204
  Receipt Date: 20151204
  Transmission Date: 20160305
  Serious: Yes (Hospitalization)
  Sender: FDA-Public Use
  Company Number: None

PATIENT
  Age: 47 Year
  Sex: Female
  Weight: 75.3 kg

DRUGS (1)
  1. DAPAGLIFLOZIN 10 MG [Suspect]
     Active Substance: DAPAGLIFLOZIN
     Indication: TYPE 2 DIABETES MELLITUS
     Route: 048

REACTIONS (3)
  - Flank pain [None]
  - Dyspnoea [None]
  - Blood pH decreased [None]

NARRATIVE: CASE EVENT DATE: 20151203
